FAERS Safety Report 8878989 (Version 4)
Quarter: 2013Q3

REPORT INFORMATION
  Report Type: Report from Study
  Country: DE (occurrence: DE)
  Receive Date: 20121026
  Receipt Date: 20130925
  Transmission Date: 20140515
  Serious: No
  Sender: FDA-Public Use
  Company Number: PHHO2012DE015118

PATIENT
  Sex: 0

DRUGS (4)
  1. CGP 57148B [Suspect]
     Indication: CHRONIC MYELOID LEUKAEMIA
     Dosage: 400 MG, BID
     Route: 048
     Dates: start: 201001
  2. HYDROCHLOROTHIAZIDE [Concomitant]
  3. IODINE [Concomitant]
     Indication: SUPPLEMENTATION THERAPY
     Route: 048
  4. REDUCTO-SPEZIAL [Concomitant]
     Indication: HYPOPHOSPHATAEMIA
     Dosage: 2-2-1
     Route: 048

REACTIONS (1)
  - Spinal compression fracture [Recovered/Resolved with Sequelae]
